FAERS Safety Report 7898964-7 (Version None)
Quarter: 2011Q4

REPORT INFORMATION
  Report Type: 
  Country: None (occurrence: None)
  Receive Date: 20111107
  Receipt Date: 20111101
  Transmission Date: 20120403
  Serious: Yes (Death, Hospitalization)
  Sender: FDA-Public Use
  Company Number: US-ASTELLAS-2011US006276

PATIENT
  Sex: Male

DRUGS (7)
  1. GEMZAR [Concomitant]
     Indication: PRODUCT USED FOR UNKNOWN INDICATION
     Dosage: UNK
     Route: 065
  2. ERLOTINIB HYDROCHLORIDE [Suspect]
     Dosage: 75 MG, UID/QD X 7 DAYS
     Route: 048
  3. ERLOTINIB HYDROCHLORIDE [Suspect]
     Indication: PANCREATIC CARCINOMA METASTATIC
     Dosage: 25 MG, UID/QD X 7 DAYS
     Route: 048
     Dates: start: 20110701
  4. ERLOTINIB HYDROCHLORIDE [Suspect]
     Dosage: 100 MG, UID/QD
     Route: 048
     Dates: end: 20110804
  5. ERLOTINIB HYDROCHLORIDE [Suspect]
     Dosage: 50 MG, UID/QD X 7 DAYS
     Route: 048
  6. OXALIPLATIN [Concomitant]
     Indication: PRODUCT USED FOR UNKNOWN INDICATION
     Dosage: UNK
     Route: 065
  7. SPIRONOLACTONE [Concomitant]
     Indication: PRODUCT USED FOR UNKNOWN INDICATION
     Dosage: UNK
     Route: 065

REACTIONS (13)
  - VOMITING [None]
  - ASTHENIA [None]
  - ANXIETY [None]
  - PANCREATIC CARCINOMA METASTATIC [None]
  - PULMONARY EMBOLISM [None]
  - NAUSEA [None]
  - CACHEXIA [None]
  - ILEUS [None]
  - MALIGNANT ASCITES [None]
  - CARDIO-RESPIRATORY ARREST [None]
  - HYPOTENSION [None]
  - DYSPHAGIA [None]
  - MALAISE [None]
